FAERS Safety Report 6519089-9 (Version None)
Quarter: 2009Q4

REPORT INFORMATION
  Report Type: 
  Country: None (occurrence: None)
  Receive Date: 20091228
  Receipt Date: 20091221
  Transmission Date: 20100525
  Serious: Yes (Other)
  Sender: FDA-Public Use
  Company Number: US-ROCHE-675926

PATIENT
  Sex: Female

DRUGS (1)
  1. TRASTUZUMAB [Suspect]
     Dosage: A FIRST DOSE OF 4 MG/KG OVER 90 MINUTES AND SUBSEQUENT DOSES OF 2 MG/KG OVER 30 MINUTES
     Route: 042

REACTIONS (7)
  - ANAEMIA [None]
  - BLOOD DISORDER [None]
  - CARDIOVASCULAR DISORDER [None]
  - GASTROINTESTINAL DISORDER [None]
  - LUNG DISORDER [None]
  - METABOLIC DISORDER [None]
  - PAIN [None]
